FAERS Safety Report 4383893-6 (Version None)
Quarter: 2004Q2

REPORT INFORMATION
  Report Type: 
  Country: None (occurrence: None)
  Receive Date: 20040623
  Receipt Date: 20040623
  Transmission Date: 20050107
  Serious: No
  Sender: FDA-Public Use
  Company Number: None

PATIENT
  Age: 82 Year
  Sex: Male
  Weight: 43.9989 kg

DRUGS (2)
  1. LESCOL XL [Suspect]
     Indication: HYPERLIPIDAEMIA
     Dosage: AS ABOVE
  2. BIAXIN XL [Suspect]
     Indication: PNEUMONIA
     Dosage: AS ABOVE

REACTIONS (1)
  - MYALGIA [None]
